FAERS Safety Report 19318700 (Version 1)
Quarter: 2021Q2

REPORT INFORMATION
  Report Type: Spontaneous
  Country: IL (occurrence: IL)
  Receive Date: 20210527
  Receipt Date: 20210527
  Transmission Date: 20210717
  Serious: Yes (Other)
  Sender: FDA-Public Use
  Company Number: IL-BEXIMCO-2021BEX00025

PATIENT
  Age: 29 Year
  Sex: Male

DRUGS (2)
  1. FLECAINIDE ACETATE. [Suspect]
     Active Substance: FLECAINIDE ACETATE
     Indication: LONG QT SYNDROME
     Dosage: UNK
     Route: 065
     Dates: start: 1996
  2. FLECAINIDE ACETATE. [Suspect]
     Active Substance: FLECAINIDE ACETATE
     Dosage: 100 MG, 2X/DAY
     Route: 065

REACTIONS (1)
  - Unmasking of previously unidentified disease [Recovered/Resolved]
